FAERS Safety Report 9239358 (Version 1)
Quarter: 2013Q2

REPORT INFORMATION
  Report Type: Spontaneous
  Country: US (occurrence: US)
  Receive Date: 20130418
  Receipt Date: 20130418
  Transmission Date: 20140414
  Serious: Yes (Other)
  Sender: FDA-Public Use
  Company Number: PHEH2013US006264

PATIENT
  Age: 46 Year
  Sex: Male
  Weight: 115.65 kg

DRUGS (5)
  1. SANDOSTATIN LAR DEPOT [Suspect]
     Indication: ACROMEGALY
     Dosage: 30 MG,
     Dates: start: 20081116
  2. LIPITOR [Concomitant]
     Dosage: 40 MG, QD
     Route: 048
  3. SERTRALINE [Concomitant]
     Dosage: 100 MG, QD
     Route: 048
  4. KEPPRA [Concomitant]
     Dosage: 500 MG, QD
     Route: 048
  5. TRIAMTERENE AND HYDROCHLOROTHIAZID [Concomitant]
     Dosage: UNK UKN,37.5-25
     Route: 048

REACTIONS (2)
  - Astrocytoma [Unknown]
  - Headache [Unknown]
